FAERS Safety Report 6537331-5 (Version None)
Quarter: 2010Q1

REPORT INFORMATION
  Report Type: 
  Country: None (occurrence: None)
  Receive Date: 20100107
  Receipt Date: 20091224
  Transmission Date: 20100710
  Serious: Yes (Other)
  Sender: FDA-Public Use
  Company Number: 2009AP004084

PATIENT
  Age: 16 Year
  Sex: Female

DRUGS (2)
  1. RISPERIDONE [Suspect]
     Indication: PSYCHOTIC DISORDER
     Dosage: 4 MG;PO;QD ; 5 MG;PO;QD ; 6 MG;PO;QD
     Route: 048
     Dates: end: 20091015
  2. RISPERIDONE [Suspect]
     Indication: PSYCHOTIC DISORDER
     Dosage: 4 MG;PO;QD ; 5 MG;PO;QD ; 6 MG;PO;QD
     Route: 048
     Dates: start: 20090806

REACTIONS (2)
  - HEADACHE [None]
  - HYPERPROLACTINAEMIA [None]
